FAERS Safety Report 25871783 (Version 2)
Quarter: 2025Q4

REPORT INFORMATION
  Report Type: Spontaneous
  Country: CN (occurrence: CN)
  Receive Date: 20251001
  Receipt Date: 20251103
  Transmission Date: 20260117
  Serious: Yes (Life-Threatening, Hospitalization, Other)
  Sender: PURDUE
  Company Number: CN-NAPPMUNDI-GBR-2025-0129279

PATIENT
  Age: 68 Year
  Sex: Male
  Weight: 53 kg

DRUGS (3)
  1. MORPHINE SULFATE [Suspect]
     Active Substance: MORPHINE SULFATE
     Indication: Cancer pain
     Dosage: UNK
     Route: 048
     Dates: start: 2025
  2. MORPHINE SULFATE [Suspect]
     Active Substance: MORPHINE SULFATE
     Dosage: 70 MILLIGRAM, Q12H
     Route: 048
     Dates: start: 20250531, end: 20250924
  3. MORPHINE SULFATE [Suspect]
     Active Substance: MORPHINE SULFATE
     Dosage: 30 MILLIGRAM, Q12H
     Route: 048
     Dates: start: 20250927

REACTIONS (11)
  - Somnolence [Recovering/Resolving]
  - Respiratory depression [Recovering/Resolving]
  - Miosis [Recovering/Resolving]
  - Large intestinal ulcer perforation [Unknown]
  - Oxygen saturation decreased [Unknown]
  - Pupillary reflex impaired [Recovered/Resolved]
  - Cyanosis [Unknown]
  - Asthenia [Unknown]
  - Coccydynia [Unknown]
  - Drug intolerance [Unknown]
  - Abdominal wall pain [Unknown]

NARRATIVE: CASE EVENT DATE: 20250101
